FAERS Safety Report 11313169 (Version 1)
Quarter: 2015Q3

REPORT INFORMATION
  Report Type: Spontaneous
  Country: US (occurrence: US)
  Receive Date: 20150727
  Receipt Date: 20150727
  Transmission Date: 20151125
  Serious: No
  Sender: FDA-Public Use
  Company Number: US-ABBVIE-14P-163-1297000-00

PATIENT

DRUGS (1)
  1. SYNTHROID [Suspect]
     Active Substance: LEVOTHYROXINE SODIUM
     Indication: PRODUCT USED FOR UNKNOWN INDICATION
     Route: 065

REACTIONS (9)
  - Hyperhidrosis [Unknown]
  - Hypothyroidism [Unknown]
  - Blood folate decreased [Unknown]
  - Chills [Unknown]
  - Feeling hot [Unknown]
  - Malaise [Unknown]
  - Vitamin B12 decreased [Unknown]
  - Serum ferritin decreased [Unknown]
  - Temperature intolerance [Unknown]
